FAERS Safety Report 20144497 (Version 2)
Quarter: 2021Q4

REPORT INFORMATION
  Report Type: Other
  Country: US (occurrence: None)
  Receive Date: 20211203
  Receipt Date: 20211210
  Transmission Date: 20220303
  Serious: Yes (Death)
  Sender: FDA-Public Use
  Company Number: US-ROCHE-2965843

PATIENT
  Age: 68 Year
  Sex: Female
  Weight: 21.6 kg

DRUGS (2)
  1. EVRYSDI [Suspect]
     Active Substance: RISDIPLAM
     Indication: Spinal muscular atrophy
     Route: 065
     Dates: start: 202012
  2. HYDROCHLOROTHIAZIDE [Concomitant]
     Active Substance: HYDROCHLOROTHIAZIDE
     Indication: Oedema
     Dosage: 37.5 MG/25 ML
     Route: 048

REACTIONS (2)
  - Cardiogenic shock [Fatal]
  - Cor pulmonale [Fatal]

NARRATIVE: CASE EVENT DATE: 20210403
